FAERS Safety Report 10064569 (Version 1)
Quarter: 2014Q2

REPORT INFORMATION
  Report Type: Spontaneous
  Country: GB (occurrence: None)
  Receive Date: 20140407
  Receipt Date: 20140407
  Transmission Date: 20141212
  Serious: Yes (Life-Threatening)
  Sender: FDA-Public Use
  Company Number: None

PATIENT
  Age: 44 Year
  Sex: Female
  Weight: 82 kg

DRUGS (2)
  1. DAFLON [Suspect]
     Indication: LOCAL SWELLING
     Route: 048
     Dates: start: 20140309, end: 20140327
  2. DAFLON [Suspect]
     Indication: ANGIOPATHY
     Route: 048
     Dates: start: 20140309, end: 20140327

REACTIONS (1)
  - International normalised ratio increased [None]
